FAERS Safety Report 5812776-7 (Version None)
Quarter: 2008Q3

REPORT INFORMATION
  Report Type: 
  Country: None (occurrence: None)
  Receive Date: 20080717
  Receipt Date: 20080711
  Transmission Date: 20090109
  Serious: Yes (Hospitalization, Other)
  Sender: FDA-Public Use
  Company Number: US-AVENTIS-200812358US

PATIENT
  Sex: Female
  Weight: 88 kg

DRUGS (2)
  1. LOVENOX [Suspect]
     Route: 058
     Dates: start: 20080410, end: 20080410
  2. COUMADIN [Concomitant]
     Dosage: DOSE: UNK
     Dates: end: 20080409

REACTIONS (5)
  - HAEMATOCRIT DECREASED [None]
  - HAEMATOMA [None]
  - INJECTION SITE HAEMATOMA [None]
  - INJECTION SITE HAEMORRHAGE [None]
  - INTERNATIONAL NORMALISED RATIO INCREASED [None]
